FAERS Safety Report 22630217 (Version 1)
Quarter: 2023Q2

REPORT INFORMATION
  Report Type: Spontaneous
  Country: US (occurrence: US)
  Receive Date: 20230622
  Receipt Date: 20230622
  Transmission Date: 20230722
  Serious: Yes (Other)
  Sender: FDA-Public Use
  Company Number: US-BEH-2023159933

PATIENT
  Sex: Female

DRUGS (1)
  1. HAEGARDA [Suspect]
     Active Substance: HUMAN C1-ESTERASE INHIBITOR
     Indication: Hereditary angioedema with normal C1 esterase inhibitor
     Dosage: UNK
     Route: 065
     Dates: start: 20230608

REACTIONS (10)
  - Feeling abnormal [Unknown]
  - Feeling abnormal [Unknown]
  - Hereditary angioedema [Recovered/Resolved]
  - Pain [Unknown]
  - Nausea [Unknown]
  - Asthenia [Unknown]
  - Abdominal pain [Unknown]
  - Fatigue [Unknown]
  - Pruritus [Unknown]
  - Vomiting [Unknown]

NARRATIVE: CASE EVENT DATE: 20230609
